FAERS Safety Report 8023497-7 (Version None)
Quarter: 2012Q1

REPORT INFORMATION
  Report Type: 
  Country: None (occurrence: None)
  Receive Date: 20120105
  Receipt Date: 20111227
  Transmission Date: 20120608
  Serious: No
  Sender: FDA-Public Use
  Company Number: US-BIOGENIDEC-2011BI048736

PATIENT
  Age: 49 Year
  Sex: Female

DRUGS (3)
  1. TYSABRI [Suspect]
     Route: 042
     Dates: start: 20070124, end: 20080529
  2. TYSABRI [Suspect]
     Indication: MULTIPLE SCLEROSIS
     Route: 042
     Dates: start: 20110908
  3. WATER WEIGHT PILLS (NOS) [Concomitant]

REACTIONS (3)
  - ABDOMINAL DISTENSION [None]
  - SWELLING [None]
  - SENSATION OF HEAVINESS [None]
